FAERS Safety Report 7968325-0 (Version None)
Quarter: 2011Q4

REPORT INFORMATION
  Report Type: 
  Country: None (occurrence: None)
  Receive Date: 20111209
  Receipt Date: 20111125
  Transmission Date: 20120403
  Serious: Yes (Hospitalization)
  Sender: FDA-Public Use
  Company Number: GB-CELGENEUS-167-C5013-11102269

PATIENT
  Sex: Female
  Weight: 64.1 kg

DRUGS (10)
  1. SIMVASTATIN [Concomitant]
     Indication: BLOOD CHOLESTEROL INCREASED
     Dosage: 20 MILLIGRAM
     Route: 048
  2. LENALIDOMIDE [Suspect]
     Dosage: 5 MILLIGRAM
     Route: 048
     Dates: start: 20110914, end: 20111012
  3. NOVOMIX INSULIN [Concomitant]
     Dosage: 10 IU (INTERNATIONAL UNIT)
     Route: 058
     Dates: start: 20010101
  4. CLOBETASOL PROPIONATE [Concomitant]
     Indication: RASH
     Dosage: 100 GRAM
     Route: 061
     Dates: start: 20110825
  5. DIPROBASE [Concomitant]
     Indication: RASH
     Route: 061
     Dates: start: 20110825
  6. ASPIRIN [Concomitant]
     Indication: AORTIC STENOSIS
     Dosage: 75 MILLIGRAM
     Route: 048
  7. LENALIDOMIDE [Suspect]
     Dosage: 10 MILLIGRAM
     Route: 048
     Dates: start: 20110818
  8. LENALIDOMIDE [Suspect]
     Dosage: 2.5 MILLIGRAM
     Route: 048
     Dates: start: 20111104, end: 20111112
  9. METFORMIN HCL [Concomitant]
     Indication: TYPE 2 DIABETES MELLITUS
     Dosage: 1500 MILLIGRAM
     Route: 048
     Dates: start: 20010101
  10. NOVOMIX INSULIN [Concomitant]
     Dosage: 26 IU (INTERNATIONAL UNIT)
     Route: 058
     Dates: start: 20010101

REACTIONS (3)
  - HAEMOGLOBIN DECREASED [None]
  - MYOCARDIAL INFARCTION [None]
  - HAEMATEMESIS [None]
